FAERS Safety Report 23622031 (Version 1)
Quarter: 2024Q1

REPORT INFORMATION
  Report Type: Spontaneous
  Country: US (occurrence: US)
  Receive Date: 20240312
  Receipt Date: 20240312
  Transmission Date: 20240410
  Serious: No
  Sender: FDA-Public Use
  Company Number: US-PFIZER INC-202400044657

PATIENT
  Age: 75 Year
  Sex: Female
  Weight: 60.15 kg

DRUGS (6)
  1. ESTRING [Suspect]
     Active Substance: ESTRADIOL
     Indication: Atrophic vulvovaginitis
     Dosage: DELVIERS 7.5MCG PER DAY, EVERY 90 DAYS
  2. ESTRING [Suspect]
     Active Substance: ESTRADIOL
     Indication: Vulvovaginal dryness
  3. OZEMPIC [Concomitant]
     Active Substance: SEMAGLUTIDE
     Indication: Insulin resistance
     Dosage: .25MG A WEEK FOR 4 WEEKS
  4. OZEMPIC [Concomitant]
     Active Substance: SEMAGLUTIDE
     Dosage: .5MG FOR 2 WEEKS
  5. OZEMPIC [Concomitant]
     Active Substance: SEMAGLUTIDE
     Dosage: .3MG FOR 3 WEEKS
  6. OZEMPIC [Concomitant]
     Active Substance: SEMAGLUTIDE
     Dosage: 1MG INJECTION PER MONTH

REACTIONS (2)
  - Laboratory test abnormal [Unknown]
  - Device use issue [Unknown]

NARRATIVE: CASE EVENT DATE: 20240131
